FAERS Safety Report 23458731 (Version 1)
Quarter: 2024Q1

REPORT INFORMATION
  Report Type: Spontaneous
  Country: US (occurrence: US)
  Receive Date: 20240130
  Receipt Date: 20240130
  Transmission Date: 20240410
  Serious: Yes (Hospitalization, Other)
  Sender: FDA-Public Use
  Company Number: US-AUROBINDO-AUR-APL-2014-08311

PATIENT
  Age: 78 Year
  Sex: Male

DRUGS (7)
  1. DONEPEZIL HYDROCHLORIDE [Suspect]
     Active Substance: DONEPEZIL HYDROCHLORIDE
     Indication: Product used for unknown indication
     Dosage: 10 MG, DAILY
     Route: 065
  2. RIVASTIGMINE [Suspect]
     Active Substance: RIVASTIGMINE
     Indication: Product used for unknown indication
     Dosage: 9.5 MILLIGRAM
     Route: 061
  3. RIVASTIGMINE [Suspect]
     Active Substance: RIVASTIGMINE
     Indication: Product used for unknown indication
     Dosage: 9.5 MG, UNK
     Route: 065
  4. METOPROLOL SUCCINATE [Concomitant]
     Active Substance: METOPROLOL SUCCINATE
     Indication: Product used for unknown indication
     Dosage: 25 MG, DAILY
     Route: 065
  5. TRAZODONE [Concomitant]
     Active Substance: TRAZODONE HYDROCHLORIDE
     Indication: Product used for unknown indication
     Dosage: 25 MG, AT BED TIME
     Route: 065
  6. WARFARIN [Concomitant]
     Active Substance: WARFARIN
     Indication: Atrial fibrillation
     Dosage: 5 MG, DAILY
     Route: 065
  7. CARBIDOPA LEVODOPA [Concomitant]
     Active Substance: CARBIDOPA\LEVODOPA
     Indication: Product used for unknown indication
     Dosage: 25-100 MG TWICE A DAY
     Route: 065

REACTIONS (11)
  - Encephalopathy [Recovered/Resolved]
  - Mental status changes [Recovered/Resolved]
  - Sinus bradycardia [Recovered/Resolved]
  - Miosis [Recovered/Resolved]
  - Slow response to stimuli [Recovered/Resolved]
  - Confusional state [Recovered/Resolved]
  - Incoherent [Recovered/Resolved]
  - Lethargy [Recovered/Resolved]
  - Blood cholinesterase decreased [Recovered/Resolved]
  - Cholinesterase inhibition [Recovered/Resolved]
  - Toxicity to various agents [Recovered/Resolved]
